FAERS Safety Report 8954469 (Version 3)
Quarter: 2013Q1

REPORT INFORMATION
  Report Type: Report from Study
  Country: FR (occurrence: FR)
  Receive Date: 20121207
  Receipt Date: 20130118
  Transmission Date: 20140127
  Serious: Yes (Hospitalization)
  Sender: FDA-Public Use
  Company Number: FR-ROCHE-1162131

PATIENT
  Age: 60 Year
  Sex: Male
  Weight: 79 kg

DRUGS (3)
  1. RITUXIMAB [Suspect]
     Indication: MANTLE CELL LYMPHOMA
     Dosage: CYCLE 1(M2)
     Route: 042
     Dates: start: 20110823, end: 201203
  2. RITUXIMAB [Suspect]
     Dosage: CYCLE 4(M8)
     Route: 042
     Dates: start: 201203
  3. VENTOLINE [Concomitant]
     Indication: ASTHMA

REACTIONS (3)
  - Atypical pneumonia [Recovered/Resolved]
  - Hypogammaglobulinaemia [Unknown]
  - Hypoxia [Recovered/Resolved]
